FAERS Safety Report 4422540-1 (Version None)
Quarter: 2004Q3

REPORT INFORMATION
  Report Type: 
  Country: None (occurrence: None)
  Receive Date: 20040805
  Receipt Date: 20040723
  Transmission Date: 20050211
  Serious: Yes (Hospitalization)
  Sender: FDA-Public Use
  Company Number: 2004050363

PATIENT
  Age: 33 Year
  Sex: Female
  Weight: 88.4514 kg

DRUGS (2)
  1. DIFLUCAN [Suspect]
     Indication: CRYPTOCOCCOSIS
     Dosage: 400 MG, 1 D, INTRAVENOUS
     Route: 042
     Dates: start: 20040625
  2. DIFLUCAN [Suspect]
     Dosage: 400 MG (200 MG , 1 IN 1 D) , ORAL
     Route: 048

REACTIONS (1)
  - OEDEMA PERIPHERAL [None]
